FAERS Safety Report 15613997 (Version 4)
Quarter: 2024Q4

REPORT INFORMATION
  Report Type: Spontaneous
  Country: RO (occurrence: RO)
  Receive Date: 20181113
  Receipt Date: 20241219
  Transmission Date: 20250115
  Serious: Yes (Other)
  Sender: MYLAN
  Company Number: RO-EMA-DD-20180612-SAMEERHPDD-110003

PATIENT

DRUGS (8)
  1. RIBAVIRIN [Interacting]
     Active Substance: RIBAVIRIN
     Indication: Hepatitis C
     Dosage: UNK
     Route: 048
  2. RIBAVIRIN [Interacting]
     Active Substance: RIBAVIRIN
     Indication: Hepatic cirrhosis
  3. PROPRANOLOL [Interacting]
     Active Substance: PROPRANOLOL HYDROCHLORIDE
     Indication: Haemorrhage prophylaxis
     Dosage: UNK
     Route: 065
  4. PROPRANOLOL [Interacting]
     Active Substance: PROPRANOLOL HYDROCHLORIDE
     Indication: Varices oesophageal
     Dosage: 120 MG, QD,(120 MG, DAILY)
     Route: 065
  5. DASABUVIR [Interacting]
     Active Substance: DASABUVIR
     Indication: Hepatitis C
     Dosage: 500 MG, QD,(500 MG, DAILY)
     Route: 048
  6. DASABUVIR [Interacting]
     Active Substance: DASABUVIR
     Indication: Hepatic cirrhosis
     Dosage: 250 MILLIGRAM
     Route: 048
  7. OMBITASVIR\PARITAPREVIR\RITONAVIR [Interacting]
     Active Substance: OMBITASVIR\PARITAPREVIR\RITONAVIR
     Indication: Hepatitis C
     Dosage: UNK, 25/150/100 MG
     Route: 048
  8. OMBITASVIR\PARITAPREVIR\RITONAVIR [Interacting]
     Active Substance: OMBITASVIR\PARITAPREVIR\RITONAVIR
     Indication: Hepatic cirrhosis

REACTIONS (7)
  - Bradycardia [Recovered/Resolved]
  - Syncope [Recovered/Resolved]
  - Drug interaction [Unknown]
  - Inappropriate schedule of product administration [Unknown]
  - Product use in unapproved indication [Unknown]
  - Product use issue [Unknown]
  - Off label use [Unknown]
